FAERS Safety Report 6528756-2 (Version None)
Quarter: 2010Q1

REPORT INFORMATION
  Report Type: 
  Country: None (occurrence: None)
  Receive Date: 20100106
  Receipt Date: 20091229
  Transmission Date: 20100710
  Serious: Yes (Hospitalization)
  Sender: FDA-Public Use
  Company Number: US-JNJFOC-20091207922

PATIENT
  Age: 29 Year
  Sex: Female
  Weight: 65.77 kg

DRUGS (3)
  1. TYLENOL (CAPLET) [Suspect]
     Route: 048
  2. TYLENOL (CAPLET) [Suspect]
     Indication: ARTHRALGIA
     Route: 048
  3. TOPAMAX [Concomitant]
     Indication: CONVULSION

REACTIONS (6)
  - ABDOMINAL PAIN UPPER [None]
  - CONVULSION [None]
  - DECREASED APPETITE [None]
  - INTENTIONAL DRUG MISUSE [None]
  - NAUSEA [None]
  - PRODUCT QUALITY ISSUE [None]
